FAERS Safety Report 12429459 (Version 1)
Quarter: 2016Q2

REPORT INFORMATION
  Report Type: Spontaneous
  Country: US (occurrence: US)
  Receive Date: 20160602
  Receipt Date: 20160602
  Transmission Date: 20160815
  Serious: No
  Sender: FDA-Public Use
  Company Number: US-BAYER-2016-108041

PATIENT
  Age: 80 Year
  Sex: Female
  Weight: 70.29 kg

DRUGS (2)
  1. MIRALAX [Suspect]
     Active Substance: POLYETHYLENE GLYCOL 3350
     Indication: CONSTIPATION
     Dosage: 1 DF, UNK
     Route: 048
     Dates: start: 201601
  2. MIRALAX [Suspect]
     Active Substance: POLYETHYLENE GLYCOL 3350
     Indication: CONSTIPATION
     Dosage: 2 DF, ONCE
     Dates: start: 20160601, end: 20160601

REACTIONS (2)
  - Product use issue [None]
  - Therapeutic response unexpected [None]

NARRATIVE: CASE EVENT DATE: 20160601
